FAERS Safety Report 17393469 (Version 1)
Quarter: 2020Q1

REPORT INFORMATION
  Report Type: Other
  Country: IT (occurrence: IT)
  Receive Date: 20200208
  Receipt Date: 20200208
  Transmission Date: 20200409
  Serious: Yes (Other)
  Sender: FDA-Public Use
  Company Number: IT-HEALTHCARE PHARMACEUTICALS LTD.-2080002

PATIENT
  Age: 18 Year
  Sex: Female

DRUGS (2)
  1. DOXORUBICIN HYDROCHLORIDE. [Suspect]
     Active Substance: DOXORUBICIN HYDROCHLORIDE
     Indication: ANGIOSARCOMA
     Route: 065
  2. IFOSFAMIDE. [Suspect]
     Active Substance: IFOSFAMIDE
     Route: 065

REACTIONS (4)
  - Metastases to lung [Unknown]
  - Menstruation irregular [Recovered/Resolved]
  - Disease progression [Unknown]
  - Angiosarcoma [Unknown]
